FAERS Safety Report 14740700 (Version 1)
Quarter: 2018Q2

REPORT INFORMATION
  Report Type: Spontaneous
  Country: GB (occurrence: GB)
  Receive Date: 20180410
  Receipt Date: 20180410
  Transmission Date: 20180711
  Serious: Yes (Other)
  Sender: FDA-Public Use
  Company Number: GB-CORDEN PHARMA LATINA S.P.A.-GB-2018COR000018

PATIENT
  Age: 70 Year
  Sex: Male

DRUGS (1)
  1. ETOPOSIDE. [Suspect]
     Active Substance: ETOPOSIDE
     Indication: PROSTATE CANCER METASTATIC
     Dosage: UNK
     Route: 065

REACTIONS (1)
  - Hypokalaemia [Recovered/Resolved]
